FAERS Safety Report 8608352-3 (Version None)
Quarter: 2012Q3

REPORT INFORMATION
  Report Type: 
  Country: None (occurrence: None)
  Receive Date: 20120821
  Receipt Date: 20120813
  Transmission Date: 20120928
  Serious: No
  Sender: FDA-Public Use
  Company Number: US-BAYER-2012-084195

PATIENT
  Age: 44 Year
  Sex: Female
  Weight: 98 kg

DRUGS (5)
  1. DAILY VITAMINS [Concomitant]
  2. PRILOSEC [Concomitant]
  3. FLONASE [Concomitant]
  4. CLARITIN [Concomitant]
  5. ALEVE (CAPLET) [Suspect]
     Indication: PRODUCT USED FOR UNKNOWN INDICATION
     Dosage: 4 DF, UNK
     Route: 048
     Dates: start: 20120813, end: 20120813

REACTIONS (1)
  - NO ADVERSE EVENT [None]
